FAERS Safety Report 25126632 (Version 1)
Quarter: 2025Q1

REPORT INFORMATION
  Report Type: Spontaneous
  Country: US (occurrence: US)
  Receive Date: 20250327
  Receipt Date: 20250327
  Transmission Date: 20250409
  Serious: No
  Sender: Haleon PLC
  Company Number: US-HALEON-2235003

PATIENT
  Age: 70 Year
  Sex: Female

DRUGS (1)
  1. NICODERM CQ [Suspect]
     Active Substance: NICOTINE
     Indication: Smoking cessation therapy

REACTIONS (3)
  - Rash [Not Recovered/Not Resolved]
  - Product use issue [Unknown]
  - Contraindicated product administered [Unknown]
